FAERS Safety Report 8085497-0 (Version None)
Quarter: 2012Q1

REPORT INFORMATION
  Report Type: 
  Country: None (occurrence: None)
  Receive Date: 20120128
  Receipt Date: 20110405
  Transmission Date: 20120608
  Serious: No
  Sender: FDA-Public Use
  Company Number: US-ABBOTT-11P-163-0710890-00

PATIENT
  Sex: Male

DRUGS (1)
  1. HUMIRA [Suspect]
     Indication: PSORIATIC ARTHROPATHY
     Dates: start: 20101201, end: 20110301

REACTIONS (5)
  - HYPERHIDROSIS [None]
  - DYSPNOEA [None]
  - BLOOD GLUCOSE INCREASED [None]
  - DIZZINESS [None]
  - BLOOD PRESSURE INCREASED [None]
